FAERS Safety Report 8531315-3 (Version None)
Quarter: 2012Q3

REPORT INFORMATION
  Report Type: 
  Country: None (occurrence: None)
  Receive Date: 20120711
  Receipt Date: 20120629
  Transmission Date: 20120928
  Serious: Yes (Other)
  Sender: FDA-Public Use
  Company Number: 2012MA004446

PATIENT
  Age: 38 Year
  Sex: Male

DRUGS (4)
  1. MIRTAZAPINE [Suspect]
     Indication: DEPRESSED MOOD
     Dosage: 15 MG,,PO
     Route: 048
     Dates: start: 20120104
  2. FLUOXETINE HCL [Concomitant]
  3. MIRTAZAPINE [Suspect]
     Indication: DEPRESSED MOOD
     Dosage: 30 MG;;PO
     Route: 048
     Dates: start: 20120104
  4. FLUOXETINE [Concomitant]

REACTIONS (3)
  - IRRITABILITY [None]
  - CONFUSIONAL STATE [None]
  - PARANOIA [None]
